FAERS Safety Report 17035168 (Version 1)
Quarter: 2019Q4

REPORT INFORMATION
  Report Type: Spontaneous
  Country: GB (occurrence: GB)
  Receive Date: 20191115
  Receipt Date: 20191115
  Transmission Date: 20200122
  Serious: Yes (Other)
  Sender: FDA-Public Use
  Company Number: GB-TEVA-2019-GB-1136922

PATIENT
  Age: 30 Year
  Sex: Female
  Weight: 63.5 kg

DRUGS (3)
  1. CHARCOAL, ACTIVATED [Concomitant]
     Active Substance: ACTIVATED CHARCOAL
  2. SUMATRIPTAN. [Suspect]
     Active Substance: SUMATRIPTAN
     Indication: MIGRAINE
     Dosage: 50 MG
     Route: 048
     Dates: start: 20171107, end: 20171107
  3. PARACETAMOL [Concomitant]
     Active Substance: ACETAMINOPHEN

REACTIONS (12)
  - Eye pain [Unknown]
  - Dermatitis allergic [Not Recovered/Not Resolved]
  - Hypoaesthesia [Unknown]
  - Neck pain [Not Recovered/Not Resolved]
  - Dizziness [Not Recovered/Not Resolved]
  - Pruritus [Unknown]
  - Visual impairment [Not Recovered/Not Resolved]
  - Head discomfort [Unknown]
  - Asthenia [Recovering/Resolving]
  - Somnolence [Not Recovered/Not Resolved]
  - Feeling abnormal [Not Recovered/Not Resolved]
  - Paraesthesia [Unknown]

NARRATIVE: CASE EVENT DATE: 20171107
